FAERS Safety Report 6403576-8 (Version None)
Quarter: 2009Q4

REPORT INFORMATION
  Report Type: 
  Country: None (occurrence: None)
  Receive Date: 20091016
  Receipt Date: 20091009
  Transmission Date: 20100525
  Serious: Yes (Other)
  Sender: FDA-Public Use
  Company Number: US-JNJFOC-20091000191

PATIENT
  Age: 5 Year
  Weight: 15.88 kg

DRUGS (2)
  1. TYLENOL (CAPLET) [Suspect]
     Route: 048
  2. TYLENOL (CAPLET) [Suspect]
     Indication: DRUG USE FOR UNKNOWN INDICATION
     Dosage: A TOTAL OF 2880 MGS, (REPORTED AS A TOTAL OF 3 OUNCES), SINGLE DOSE AND FREQUENCY UNSPECIFIED
     Route: 048

REACTIONS (4)
  - EYELID OEDEMA [None]
  - LIP SWELLING [None]
  - TRANSMISSION OF AN INFECTIOUS AGENT VIA A MEDICINAL PRODUCT [None]
  - URTICARIA [None]
